FAERS Safety Report 9165406 (Version 2)
Quarter: 2013Q1

REPORT INFORMATION
  Report Type: Spontaneous
  Country: NO (occurrence: NO)
  Receive Date: 20130315
  Receipt Date: 20130324
  Transmission Date: 20140127
  Serious: Yes (Other)
  Sender: FDA-Public Use
  Company Number: NO-PFIZER INC-2013084192

PATIENT
  Age: 59 Year
  Sex: Female

DRUGS (1)
  1. CHAMPIX [Suspect]
     Indication: SMOKING CESSATION THERAPY
     Dosage: UNK

REACTIONS (5)
  - Mental disorder [Unknown]
  - Depression [Unknown]
  - Aggression [Unknown]
  - Suicidal ideation [Unknown]
  - Hallucination [Unknown]
